FAERS Safety Report 5196535-7 (Version None)
Quarter: 2006Q4

REPORT INFORMATION
  Report Type: 
  Country: None (occurrence: None)
  Receive Date: 20061227
  Receipt Date: 20061219
  Transmission Date: 20070319
  Serious: Yes (Hospitalization)
  Sender: FDA-Public Use
  Company Number: 230618

PATIENT
  Age: 15 Year
  Sex: Female
  Weight: 30 kg

DRUGS (9)
  1. RITUXAN [Suspect]
     Indication: TRANSPLANT REJECTION
  2. TACROLIMUS HYDRATE (TACROLIMUS) [Suspect]
     Indication: TRANSPLANT REJECTION
  3. STEROID (UNK INGREDIENTS) (STEROID NOS) [Suspect]
     Indication: TRANSPLANT REJECTION
  4. MIZORIBINE (MIZORIBINE) [Suspect]
     Indication: TRANSPLANT REJECTION
  5. ALPROSTADIL [Concomitant]
  6. GABEXATE MESYLATE [Concomitant]
  7. PIPERACILLIN (PIPERACILLIN SODIUM) [Concomitant]
  8. AMIKACIN [Concomitant]
  9. CYCLOPHOSPHAMIDE [Suspect]
     Indication: TRANSPLANT REJECTION

REACTIONS (4)
  - DISSEMINATED INTRAVASCULAR COAGULATION [None]
  - EPSTEIN-BARR VIRUS INFECTION [None]
  - INFECTION [None]
  - PORTAL VEIN THROMBOSIS [None]
